FAERS Safety Report 20581728 (Version 1)
Quarter: 2022Q1

REPORT INFORMATION
  Report Type: Spontaneous
  Country: US (occurrence: US)
  Receive Date: 20220311
  Receipt Date: 20220311
  Transmission Date: 20220423
  Serious: No
  Sender: FDA-Public Use
  Company Number: US-GSKCCFUS-Case-01317312_AE-76658

PATIENT
  Age: 74 Year
  Sex: Female

DRUGS (1)
  1. SOTROVIMAB [Suspect]
     Active Substance: SOTROVIMAB
     Indication: Product used for unknown indication
     Dosage: UNK
     Route: 041
     Dates: start: 20220307

REACTIONS (12)
  - Fatigue [Unknown]
  - Somnolence [Unknown]
  - Adverse drug reaction [Unknown]
  - Illness [Not Recovered/Not Resolved]
  - Malaise [Unknown]
  - Chills [Not Recovered/Not Resolved]
  - Dizziness [Unknown]
  - Myalgia [Unknown]
  - Headache [Unknown]
  - Asthenia [Unknown]
  - Tremor [Not Recovered/Not Resolved]
  - Hyperhidrosis [Unknown]

NARRATIVE: CASE EVENT DATE: 20220301
